FAERS Safety Report 13523146 (Version 2)
Quarter: 2017Q2

REPORT INFORMATION
  Report Type: Spontaneous
  Country: US (occurrence: US)
  Receive Date: 20170508
  Receipt Date: 20170620
  Transmission Date: 20170830
  Serious: Yes (Death, Hospitalization, Other)
  Sender: FDA-Public Use
  Company Number: US-PFIZER INC-2017194811

PATIENT
  Age: 61 Year
  Sex: Female
  Weight: 55 kg

DRUGS (18)
  1. POSACONAZOLE [Concomitant]
     Active Substance: POSACONAZOLE
     Dosage: UNK
     Dates: start: 20170302
  2. PENTOSTATIN. [Suspect]
     Active Substance: PENTOSTATIN
     Indication: GRAFT VERSUS HOST DISEASE IN GASTROINTESTINAL TRACT
     Dosage: 1.5 MG/M2
     Route: 042
     Dates: start: 20170207, end: 20170209
  3. PENTOSTATIN. [Suspect]
     Active Substance: PENTOSTATIN
     Indication: GRAFT VERSUS HOST DISEASE
  4. JAKAFI [Suspect]
     Active Substance: RUXOLITINIB
     Dosage: 5 MG, DAILY (QD)
     Route: 048
     Dates: start: 20170221, end: 20170302
  5. AMBISOME [Concomitant]
     Active Substance: AMPHOTERICIN B
     Dosage: UNK
     Dates: start: 20170226
  6. AMBISOME [Concomitant]
     Active Substance: AMPHOTERICIN B
     Dosage: UNK
     Dates: start: 20170302
  7. POSACONAZOLE [Concomitant]
     Active Substance: POSACONAZOLE
     Dosage: UNK
     Dates: start: 20170201
  8. MOXIFLOXACIN. [Concomitant]
     Active Substance: MOXIFLOXACIN
     Dosage: UNK
     Dates: start: 20170302
  9. AMICAR [Concomitant]
     Active Substance: AMINOCAPROIC ACID
     Dosage: UNK
     Route: 041
     Dates: start: 20170211, end: 20170215
  10. JAKAFI [Suspect]
     Active Substance: RUXOLITINIB
     Indication: GRAFT VERSUS HOST DISEASE IN GASTROINTESTINAL TRACT
     Dosage: 5 MG, 2X/DAY
     Route: 048
     Dates: start: 20170120
  11. CELLCEPT [Concomitant]
     Active Substance: MYCOPHENOLATE MOFETIL\MYCOPHENOLATE MOFETIL HYDROCHLORIDE
     Dosage: UNK
     Dates: start: 20170209
  12. PREDNISONE. [Concomitant]
     Active Substance: PREDNISONE
     Indication: GRAFT VERSUS HOST DISEASE
     Dosage: UNK
  13. TACROLIMUS. [Concomitant]
     Active Substance: TACROLIMUS
     Indication: GRAFT VERSUS HOST DISEASE
     Dosage: UNK
     Dates: start: 20161114
  14. CASPOFUNGIN [Concomitant]
     Active Substance: CASPOFUNGIN
     Dosage: UNK
     Dates: start: 20170302
  15. AMICAR [Concomitant]
     Active Substance: AMINOCAPROIC ACID
     Dosage: UNK
     Route: 041
     Dates: start: 20170217
  16. RUXOLITINIB [Concomitant]
     Active Substance: RUXOLITINIB
     Indication: GRAFT VERSUS HOST DISEASE
     Dosage: 5 MG, 2X/DAY
     Route: 048
     Dates: start: 20170125
  17. VORICONAZOLE. [Concomitant]
     Active Substance: VORICONAZOLE
     Indication: FUNGAL INFECTION
     Dosage: 200 MG, 2X/DAY
     Route: 048
     Dates: start: 201611
  18. SIROLIMUS. [Concomitant]
     Active Substance: SIROLIMUS
     Indication: GRAFT VERSUS HOST DISEASE
     Dosage: UNK

REACTIONS (33)
  - Haematochezia [Not Recovered/Not Resolved]
  - Cytomegalovirus colitis [Unknown]
  - Bronchopulmonary aspergillosis [Unknown]
  - Abdominal distension [Unknown]
  - Haemoglobin decreased [Unknown]
  - Pancytopenia [Unknown]
  - Ascites [Unknown]
  - Leukopenia [Unknown]
  - Platelet count decreased [Unknown]
  - Hyponatraemia [Recovering/Resolving]
  - Anorectal discomfort [Unknown]
  - Delirium [Unknown]
  - Respiratory failure [Unknown]
  - Large intestinal ulcer [Unknown]
  - Neutropenia [Unknown]
  - Abdominal pain [Not Recovered/Not Resolved]
  - Hepatic enzyme increased [Unknown]
  - White blood cell count decreased [Unknown]
  - Graft versus host disease in gastrointestinal tract [Fatal]
  - Rectal ulcer [Unknown]
  - Hypotension [Unknown]
  - Pneumonia [Unknown]
  - Cough [Unknown]
  - Dyspnoea [Unknown]
  - Small intestinal obstruction [Unknown]
  - Parainfluenzae virus infection [Unknown]
  - Atrial fibrillation [Unknown]
  - Blood bilirubin increased [Unknown]
  - Pneumonia fungal [Unknown]
  - Melaena [Unknown]
  - Haemorrhoids [Unknown]
  - Diarrhoea [Unknown]
  - Haematuria [Not Recovered/Not Resolved]

NARRATIVE: CASE EVENT DATE: 20170202
